FAERS Safety Report 12224111 (Version 5)
Quarter: 2016Q4

REPORT INFORMATION
  Report Type: Report from Study
  Country: CA (occurrence: CA)
  Receive Date: 20160330
  Receipt Date: 20161104
  Transmission Date: 20170207
  Serious: Yes (Hospitalization, Other)
  Sender: FDA-Public Use
  Company Number: CA-AMGEN-CANSL2016036403

PATIENT
  Age: 49 Year
  Sex: Female

DRUGS (10)
  1. VITAMIN D [Concomitant]
     Active Substance: CHOLECALCIFEROL
     Dosage: 50,000 IU ONCE WEEKLY
  2. ENBREL [Suspect]
     Active Substance: ETANERCEPT
     Indication: PRODUCT USED FOR UNKNOWN INDICATION
     Dosage: 50 MG, UNK
     Route: 065
     Dates: start: 20160314, end: 20161031
  3. GABAPENTIN. [Concomitant]
     Active Substance: GABAPENTIN
     Dosage: 300 MG 2 CAPSULES THREE TIMES A DAY
  4. AMLODIPINE [Concomitant]
     Active Substance: AMLODIPINE BESYLATE
     Dosage: .5 TAB ONCE A DAY
  5. SYNTHROID [Concomitant]
     Active Substance: LEVOTHYROXINE SODIUM
     Dosage: 0.125 MGS ONCE DAILY
  6. PREDNISONE. [Concomitant]
     Active Substance: PREDNISONE
     Dosage: UNK
  7. POTASSIUM [Concomitant]
     Active Substance: POTASSIUM
     Dosage: 600 MG TWICE A DAY
  8. TECTA [Concomitant]
     Active Substance: PANTOPRAZOLE MAGNESIUM
     Dosage: UNK UNK,ONCE DAILY
  9. ACETAMINOPHEN. [Concomitant]
     Active Substance: ACETAMINOPHEN
     Dosage: 325 MG TWO EVERY FOUR HOURS
  10. STATEX [Concomitant]
     Active Substance: MORPHINE SULFATE
     Indication: PAIN
     Dosage: PRN 5 MG FOR PAIN 12 TABS EVERY 4 HOURS NOW ON 12 TABS A DAY (USUALLY AT NIGHT)

REACTIONS (9)
  - Tooth infection [Unknown]
  - Intervertebral disc protrusion [Recovering/Resolving]
  - Post procedural complication [Unknown]
  - Arthritis [Unknown]
  - Hospitalisation [Unknown]
  - Back injury [Recovered/Resolved]
  - Sensory loss [Unknown]
  - Intervertebral disc disorder [Unknown]
  - Adverse drug reaction [Unknown]

NARRATIVE: CASE EVENT DATE: 2016
